FAERS Safety Report 12163516 (Version 1)
Quarter: 2016Q1

REPORT INFORMATION
  Report Type: Spontaneous
  Country: US (occurrence: US)
  Receive Date: 20160309
  Receipt Date: 20160309
  Transmission Date: 20160526
  Serious: No
  Sender: FDA-Public Use
  Company Number: US-ROCHE-1541717

PATIENT
  Age: 46 Year
  Sex: Female

DRUGS (1)
  1. XOLAIR [Suspect]
     Active Substance: OMALIZUMAB
     Indication: ASTHMA
     Route: 065
     Dates: start: 20140619

REACTIONS (5)
  - Flushing [Unknown]
  - Feeling abnormal [Unknown]
  - Vertigo [Unknown]
  - Headache [Unknown]
  - Anxiety [Not Recovered/Not Resolved]
